FAERS Safety Report 9219586 (Version 1)
Quarter: 2013Q2

REPORT INFORMATION
  Report Type: Spontaneous
  Country: US (occurrence: US)
  Receive Date: 20130409
  Receipt Date: 20130409
  Transmission Date: 20140414
  Serious: No
  Sender: FDA-Public Use
  Company Number: US-TEVA-396847USA

PATIENT
  Age: 79 Year
  Sex: Female
  Weight: 85.81 kg

DRUGS (11)
  1. QNASL [Suspect]
  2. SIMVASTATIN [Concomitant]
  3. ATENOLOL [Concomitant]
  4. TRIAMTERENE [Concomitant]
  5. MULTIVITAMIN [Concomitant]
  6. ASPIRIN [Concomitant]
  7. VITAMIN D3 [Concomitant]
  8. CALCIUM CARBONATE [Concomitant]
  9. OMEGA 3 FISH OIL [Concomitant]
  10. SYSTANE [Concomitant]
     Route: 031
  11. MECLIZINE [Concomitant]
     Indication: VERTIGO

REACTIONS (1)
  - Blood glucose increased [Unknown]
